FAERS Safety Report 9528669 (Version 1)
Quarter: 2013Q1

REPORT INFORMATION
  Report Type: Spontaneous
  Country: US (occurrence: None)
  Receive Date: 20130314
  Receipt Date: 20130314
  Transmission Date: 20140127
  Serious: No
  Sender: FDA-Public Use
  Company Number: 1211USA012368

PATIENT
  Age: 53 Year
  Sex: Male

DRUGS (3)
  1. PEGINTRON [Suspect]
     Indication: HEPATITIS C
     Dates: start: 20121028
  2. RIBAVIRIN [Suspect]
     Indication: HEPATITIS C
     Dates: start: 20121028
  3. VICTRELIS [Suspect]
     Indication: HEPATITIS C
     Dates: start: 20121125

REACTIONS (6)
  - Diarrhoea [None]
  - Fatigue [None]
  - Thirst [None]
  - Urine output increased [None]
  - White blood cell count abnormal [None]
  - Malaise [None]
